FAERS Safety Report 19735813 (Version 1)
Quarter: 2021Q3

REPORT INFORMATION
  Report Type: Spontaneous
  Country: DE (occurrence: DE)
  Receive Date: 20210823
  Receipt Date: 20210823
  Transmission Date: 20211014
  Serious: Yes (Other)
  Sender: FDA-Public Use
  Company Number: DE-MYLANLABS-2021M1046439

PATIENT
  Age: 56 Year
  Sex: Female
  Weight: 57 kg

DRUGS (2)
  1. CYMBALTA [Suspect]
     Active Substance: DULOXETINE HYDROCHLORIDE
     Indication: PRODUCT USED FOR UNKNOWN INDICATION
     Dosage: UNK
     Dates: start: 2008
  2. FLUOXETINE [Suspect]
     Active Substance: FLUOXETINE HYDROCHLORIDE
     Indication: DEPRESSION
     Dosage: DOSAGE FLUOXETINE UNKNOWN
     Route: 048
     Dates: start: 2000, end: 2009

REACTIONS (7)
  - Drug ineffective [Unknown]
  - Abnormal dreams [Unknown]
  - Taste disorder [Unknown]
  - Weight increased [Unknown]
  - Anosmia [Recovered/Resolved with Sequelae]
  - Fatigue [Unknown]
  - Urinary retention [Unknown]

NARRATIVE: CASE EVENT DATE: 2000
